FAERS Safety Report 23038175 (Version 3)
Quarter: 2023Q4

REPORT INFORMATION
  Report Type: Spontaneous
  Country: BH (occurrence: BH)
  Receive Date: 20231006
  Receipt Date: 20231128
  Transmission Date: 20240110
  Serious: Yes (Other)
  Sender: FDA-Public Use
  Company Number: BH-002147023-NVSC2023BH214972

PATIENT
  Age: 11 Year
  Sex: Female

DRUGS (1)
  1. COSENTYX [Suspect]
     Active Substance: SECUKINUMAB
     Indication: Psoriasis
     Dosage: 150 MG, QW (5 CONSECUTIVE WEEKLY DOSES, FOLLOWED BY ON MONTHLY DOSE, DURATION AND CIRCUMSTANCES OF E
     Route: 058
     Dates: start: 20230301, end: 20230901

REACTIONS (1)
  - Scleroderma-like reaction [Not Recovered/Not Resolved]

NARRATIVE: CASE EVENT DATE: 20230901
